FAERS Safety Report 14605506 (Version 1)
Quarter: 2018Q1

REPORT INFORMATION
  Report Type: Other
  Country: US (occurrence: US)
  Receive Date: 20180306
  Receipt Date: 20180306
  Transmission Date: 20180509
  Serious: No
  Sender: FDA-Public Use
  Company Number: US-INTERCEPT-PMOCA2017001766

PATIENT

DRUGS (3)
  1. OCALIVA [Suspect]
     Active Substance: OBETICHOLIC ACID
     Indication: PRIMARY BILIARY CHOLANGITIS
     Dosage: 5 MG, QD
     Route: 048
     Dates: start: 20170317, end: 20170615
  2. URSODIOL. [Concomitant]
     Active Substance: URSODIOL
     Indication: PRIMARY BILIARY CHOLANGITIS
     Dosage: 1500 MG, QD
     Route: 065
  3. OCALIVA [Suspect]
     Active Substance: OBETICHOLIC ACID
     Dosage: 10 MG, QD
     Route: 048
     Dates: start: 20170615, end: 201710

REACTIONS (4)
  - Drug ineffective [Unknown]
  - Fatigue [Unknown]
  - Sleep disorder [Unknown]
  - Pruritus [Unknown]
